FAERS Safety Report 22046349 (Version 2)
Quarter: 2023Q1

REPORT INFORMATION
  Report Type: Other
  Country: None (occurrence: PL)
  Receive Date: 20230228
  Receipt Date: 20230322
  Transmission Date: 20230418
  Serious: Yes (Death, Hospitalization, Other)
  Sender: FDA-Public Use
  Company Number: PL-B.Braun Medical Inc.-2138558

PATIENT
  Age: 58 Year
  Sex: Female

DRUGS (7)
  1. CEFUROXIME SODIUM [Suspect]
     Active Substance: CEFUROXIME SODIUM
     Indication: Bacterial infection
  2. AMPHOTERICIN B [Suspect]
     Active Substance: AMPHOTERICIN B
  3. ITRACONAZOLE [Suspect]
     Active Substance: ITRACONAZOLE
  4. IMIPENEM [Suspect]
     Active Substance: IMIPENEM
  5. AMPICILLIN SODIUM\SULBACTAM SODIUM [Suspect]
     Active Substance: AMPICILLIN SODIUM\SULBACTAM SODIUM
  6. AMIKACIN [Suspect]
     Active Substance: AMIKACIN
  7. COLISTIN [Suspect]
     Active Substance: COLISTIN

REACTIONS (2)
  - Renal failure [Fatal]
  - Diabetes mellitus [Unknown]
